FAERS Safety Report 13512605 (Version 3)
Quarter: 2017Q4

REPORT INFORMATION
  Report Type: Report from Study
  Country: GB (occurrence: GB)
  Receive Date: 20170504
  Receipt Date: 20171220
  Transmission Date: 20180320
  Serious: Yes (Life-Threatening, Other)
  Sender: FDA-Public Use
  Company Number: GB-BEH-2017079919

PATIENT
  Age: 45 Year
  Sex: Male

DRUGS (1)
  1. RIASTAP [Suspect]
     Active Substance: FIBRINOGEN HUMAN
     Indication: TRAUMATIC HAEMORRHAGE
     Dosage: 6 G, TOT
     Route: 065
     Dates: start: 20161023

REACTIONS (4)
  - Cardiovascular disorder [Recovered/Resolved]
  - Ischaemic cerebral infarction [Recovered/Resolved]
  - Coma scale abnormal [Recovered/Resolved]
  - Neutropenia [Recovered/Resolved]

NARRATIVE: CASE EVENT DATE: 20161023
